FAERS Safety Report 12746696 (Version 1)
Quarter: 2016Q3

REPORT INFORMATION
  Report Type: Spontaneous
  Country: US (occurrence: US)
  Receive Date: 20160915
  Receipt Date: 20160915
  Transmission Date: 20161109
  Serious: Yes (Death)
  Sender: FDA-Public Use
  Company Number: None

PATIENT
  Age: 68 Year
  Sex: Female
  Weight: 95 kg

DRUGS (1)
  1. APIXABAN [Suspect]
     Active Substance: APIXABAN

REACTIONS (6)
  - Nausea [None]
  - Haemorrhagic stroke [None]
  - Vomiting [None]
  - Headache [None]
  - Aphasia [None]
  - Hypertension [None]

NARRATIVE: CASE EVENT DATE: 20160811
